FAERS Safety Report 11868036 (Version 2)
Quarter: 2015Q4

REPORT INFORMATION
  Report Type: Spontaneous
  Country: PL (occurrence: PL)
  Receive Date: 20151224
  Receipt Date: 20151229
  Transmission Date: 20160305
  Serious: Yes (Life-Threatening)
  Sender: FDA-Public Use
  Company Number: PHHY2015PL165151

PATIENT
  Age: 18 Month
  Sex: Male

DRUGS (1)
  1. AMOKSIKLAV [Suspect]
     Active Substance: AMOXICILLIN\CLAVULANATE POTASSIUM
     Indication: PRODUCT USED FOR UNKNOWN INDICATION
     Route: 042

REACTIONS (5)
  - Erythema [Unknown]
  - Oedema [Unknown]
  - Lip oedema [Unknown]
  - Loss of consciousness [Unknown]
  - Eye oedema [Unknown]

NARRATIVE: CASE EVENT DATE: 20151206
